FAERS Safety Report 10028322 (Version 3)
Quarter: 2014Q2

REPORT INFORMATION
  Report Type: Report from Study
  Country: US (occurrence: US)
  Receive Date: 20140321
  Receipt Date: 20140501
  Transmission Date: 20141212
  Serious: Yes (Death, Hospitalization)
  Sender: FDA-Public Use
  Company Number: US-ACTELION-A-NJ2013-85373

PATIENT
  Age: 67 Year
  Sex: Female

DRUGS (3)
  1. VELETRI [Suspect]
     Indication: PULMONARY ARTERIAL HYPERTENSION
     Dosage: 80 NG/KG, PER MIN
     Route: 042
     Dates: start: 20101010, end: 20140314
  2. TRACLEER [Suspect]
     Indication: PULMONARY ARTERIAL HYPERTENSION
     Dosage: UNK
     Route: 048
     Dates: end: 20140314
  3. SILDENAFIL [Concomitant]

REACTIONS (5)
  - Pulmonary arterial hypertension [Fatal]
  - Right ventricular failure [Fatal]
  - Scleroderma [Fatal]
  - Hypotension [Unknown]
  - Syncope [Unknown]
